FAERS Safety Report 5027992-4 (Version None)
Quarter: 2006Q2

REPORT INFORMATION
  Report Type: 
  Country: None (occurrence: None)
  Receive Date: 20060612
  Receipt Date: 20060529
  Transmission Date: 20061013
  Serious: Yes (Other)
  Sender: FDA-Public Use
  Company Number: CHWYE673231MAY06

PATIENT
  Sex: Female

DRUGS (3)
  1. EFFEXOR [Suspect]
     Dosage: SEE IMAGE
     Route: 048
     Dates: start: 20060501, end: 20060501
  2. EFFEXOR [Suspect]
     Dosage: SEE IMAGE
     Route: 048
     Dates: start: 20060501
  3. TRIMIPRAMINE                     (TRIMIPRAMINE, , 0) [Suspect]
     Dosage: 1 DOSE 2X PER 1 DAY

REACTIONS (5)
  - DEPERSONALISATION [None]
  - DEREALISATION [None]
  - DRUG INTERACTION [None]
  - FEAR [None]
  - SENSATION OF HEAVINESS [None]
